FAERS Safety Report 8956938 (Version 2)
Quarter: 2012Q4

REPORT INFORMATION
  Report Type: Report from Study
  Country: JP (occurrence: JP)
  Receive Date: 20121211
  Receipt Date: 20121226
  Transmission Date: 20130627
  Serious: Yes (Death)
  Sender: FDA-Public Use
  Company Number: PHHY2012JP112641

PATIENT
  Age: 70 Year
  Sex: Male
  Weight: 59 kg

DRUGS (4)
  1. INDACATEROL [Suspect]
     Indication: CHRONIC OBSTRUCTIVE PULMONARY DISEASE
     Dosage: 150 ug, QD
     Dates: start: 20121029, end: 20121125
  2. SPIRIVA [Suspect]
     Dosage: 5 UNK, UNK
     Dates: start: 20121125
  3. ADOAIR [Concomitant]
     Dosage: UNK
     Dates: start: 20121028
  4. ALVESCO [Concomitant]
     Dosage: UNK
     Dates: start: 20121029, end: 20121125

REACTIONS (2)
  - Sudden death [Fatal]
  - Dyspnoea exertional [Unknown]
